FAERS Safety Report 7575139-2 (Version None)
Quarter: 2011Q2

REPORT INFORMATION
  Report Type: 
  Country: None (occurrence: None)
  Receive Date: 20110627
  Receipt Date: 20090316
  Transmission Date: 20111010
  Serious: Yes (Hospitalization, Other)
  Sender: FDA-Public Use
  Company Number: US-BAYER-200915579NA

PATIENT
  Age: 71 Year
  Sex: Male
  Weight: 100.68 kg

DRUGS (10)
  1. SODIUM BICARBONATE [Concomitant]
     Dosage: 50 MEQ + 50 MEQ, PUMP PRIME
     Route: 042
     Dates: start: 20021113, end: 20021113
  2. HEPARIN [Concomitant]
     Dosage: UNK
     Route: 042
     Dates: start: 20021113, end: 20021113
  3. ACETYLSALICYLIC ACID SRT [Concomitant]
     Indication: CARDIAC DISORDER
     Dosage: UNK
  4. ZESTRIL [Concomitant]
     Indication: BLOOD CHOLESTEROL INCREASED
  5. ALBUMIN (HUMAN) [Concomitant]
     Dosage: 50 G, UNK, PUMP PRIME
     Route: 042
     Dates: start: 20021113, end: 20021113
  6. TRASYLOL [Suspect]
     Indication: CORONARY ARTERY BYPASS
     Dosage: 1 ML, ONCE, INITIAL TEST DOSE
     Route: 042
     Dates: start: 20021113, end: 20021113
  7. TRASYLOL [Suspect]
     Dosage: 50 CC/HR INFUSION
     Route: 042
     Dates: start: 20021113, end: 20021113
  8. ALBUMIN (HUMAN) [Concomitant]
     Dosage: 250 ML, ONCE
     Route: 042
     Dates: start: 20021113
  9. TRASYLOL [Suspect]
     Dosage: 200 ML LOADING DOSE
     Route: 042
     Dates: start: 20021113, end: 20021113
  10. ETOMIDATE [Concomitant]
     Dosage: 10 MG, UNK
     Route: 042
     Dates: start: 20021113, end: 20021113

REACTIONS (8)
  - RENAL FAILURE [None]
  - ANHEDONIA [None]
  - ANXIETY [None]
  - PAIN [None]
  - FEAR [None]
  - DEPRESSION [None]
  - INJURY [None]
  - UNEVALUABLE EVENT [None]
